FAERS Safety Report 10079848 (Version 2)
Quarter: 2014Q2

REPORT INFORMATION
  Report Type: Spontaneous
  Country: US (occurrence: US)
  Receive Date: 20140415
  Receipt Date: 20140529
  Transmission Date: 20141212
  Serious: Yes (Other)
  Sender: FDA-Public Use
  Company Number: US-TEVA-474805USA

PATIENT
  Age: 80 Year
  Sex: Male

DRUGS (2)
  1. GLIBENCLAMIDE [Suspect]
     Dosage: 7.5 MILLIGRAM DAILY;
  2. GLIPIZIDE [Suspect]

REACTIONS (5)
  - Colectomy [Unknown]
  - Knee arthroplasty [Unknown]
  - Hypoglycaemia [Recovered/Resolved]
  - Thyroid disorder [Unknown]
  - Blood glucose fluctuation [Recovered/Resolved]
